FAERS Safety Report 6605209-4 (Version None)
Quarter: 2010Q1

REPORT INFORMATION
  Report Type: 
  Country: None (occurrence: None)
  Receive Date: 20100226
  Receipt Date: 20100217
  Transmission Date: 20100710
  Serious: Yes (Other)
  Sender: FDA-Public Use
  Company Number: US-AMGEN-QUU391617

PATIENT
  Sex: Female
  Weight: 100 kg

DRUGS (9)
  1. NPLATE [Suspect]
     Indication: IDIOPATHIC THROMBOCYTOPENIC PURPURA
     Dates: start: 20091007
  2. HYZAAR [Concomitant]
  3. SYNTHROID [Concomitant]
  4. METOPROLOL TARTRATE [Concomitant]
  5. GLUCOSAMINE [Concomitant]
  6. MULTI-VITAMINS [Concomitant]
  7. VITAMIN B-12 [Concomitant]
  8. BIOTIN [Concomitant]
  9. FOLIC ACID [Concomitant]

REACTIONS (4)
  - ARTHRALGIA [None]
  - DIZZINESS [None]
  - MUSCULOSKELETAL PAIN [None]
  - THERAPEUTIC RESPONSE DECREASED [None]
